FAERS Safety Report 5825463-6 (Version None)
Quarter: 2008Q3

REPORT INFORMATION
  Report Type: 
  Country: None (occurrence: None)
  Receive Date: 20080725
  Receipt Date: 20080725
  Transmission Date: 20090109
  Serious: No
  Sender: FDA-Public Use
  Company Number: None

PATIENT
  Age: 37 Year
  Sex: Female

DRUGS (1)
  1. AVELOX [Suspect]
     Indication: EAR INFECTION
     Dosage: 400MG ONE TIME A DAY PO, FOR 2 DOSES
     Route: 048
     Dates: start: 20080722, end: 20080724

REACTIONS (4)
  - ARTHROPATHY [None]
  - NAUSEA [None]
  - TENDON PAIN [None]
  - TREMOR [None]
